FAERS Safety Report 7597813 (Version 22)
Quarter: 2018Q4

REPORT INFORMATION
  Report Type: Report from Study
  Country: CA (occurrence: CA)
  Receive Date: 20100920
  Receipt Date: 20181221
  Transmission Date: 20190205
  Serious: Yes (Other)
  Sender: FDA-Public Use
  Company Number: PHHY2010CA60890

PATIENT
  Age: 66 Year
  Sex: Male

DRUGS (2)
  1. SANDOSTATIN LAR DEPOT [Suspect]
     Active Substance: OCTREOTIDE ACETATE
     Indication: ACROMEGALY
     Dosage: 10 MG, QMO
     Route: 030
     Dates: start: 20011123, end: 201607
  2. SANDOSTATIN LAR DEPOT [Suspect]
     Active Substance: OCTREOTIDE ACETATE
     Dosage: 10 MG, QMO
     Route: 030

REACTIONS (10)
  - Urinary tract infection [Recovering/Resolving]
  - Myalgia [Unknown]
  - Blood cholesterol decreased [Unknown]
  - Heart rate decreased [Unknown]
  - Insulin-like growth factor increased [Unknown]
  - Deafness [Unknown]
  - Body temperature decreased [Unknown]
  - Malaise [Unknown]
  - Limb injury [Unknown]
  - Blood pressure increased [Unknown]

NARRATIVE: CASE EVENT DATE: 20140204
